FAERS Safety Report 10269700 (Version 4)
Quarter: 2014Q3

REPORT INFORMATION
  Report Type: Spontaneous
  Country: US (occurrence: None)
  Receive Date: 20140623
  Receipt Date: 20140822
  Transmission Date: 20150326
  Serious: Yes (Life-Threatening, Hospitalization, Other)
  Sender: FDA-Public Use
  Company Number: 003-192

PATIENT
  Age: 56 Year
  Sex: Male

DRUGS (1)
  1. CROFAB [Suspect]
     Active Substance: CROTALIDAE POLYVALENT IMMUNE FAB (OVINE)
     Indication: SNAKE BITE
     Dates: start: 20140610, end: 20140610

REACTIONS (12)
  - Blood pressure decreased [None]
  - Blood glucose increased [None]
  - Cardiac arrest [None]
  - Haematocrit decreased [None]
  - Erythema [None]
  - Pain [None]
  - Swelling [None]
  - International normalised ratio decreased [None]
  - Pulseless electrical activity [None]
  - Platelet count decreased [None]
  - Anaphylactic reaction [None]
  - Haemoglobin decreased [None]

NARRATIVE: CASE EVENT DATE: 20140610
